FAERS Safety Report 5071380-1 (Version None)
Quarter: 2006Q3

REPORT INFORMATION
  Report Type: 
  Country: None (occurrence: None)
  Receive Date: 20060804
  Receipt Date: 20060313
  Transmission Date: 20061208
  Serious: No
  Sender: FDA-Public Use
  Company Number: US-AMGEN-US172185

PATIENT
  Sex: Female
  Weight: 59 kg

DRUGS (9)
  1. ARANESP [Suspect]
     Indication: ANAEMIA
     Dates: start: 20051201
  2. COZAAR [Concomitant]
     Route: 065
  3. TORSEMIDE [Concomitant]
     Route: 065
  4. SPIRONOLACTONE [Concomitant]
     Route: 065
  5. PROTONIX [Concomitant]
     Route: 065
  6. IRON [Concomitant]
     Route: 065
  7. ZOLOFT [Concomitant]
     Route: 065
  8. COUMADIN [Concomitant]
     Route: 065
  9. PROCRIT [Concomitant]
     Dates: start: 20040101, end: 20050101

REACTIONS (2)
  - DIARRHOEA [None]
  - FLATULENCE [None]
